FAERS Safety Report 9294321 (Version 3)
Quarter: 2013Q2

REPORT INFORMATION
  Report Type: Spontaneous
  Country: US (occurrence: None)
  Receive Date: 20130514
  Receipt Date: 20130531
  Transmission Date: 20140414
  Serious: Yes (Other)
  Sender: FDA-Public Use
  Company Number: JPI-P-031414

PATIENT
  Age: 44 Year
  Sex: Female
  Weight: 95.71 kg

DRUGS (7)
  1. XYREM [Suspect]
     Indication: NARCOLEPSY
     Route: 048
     Dates: start: 2008, end: 201211
  2. XYREM [Suspect]
     Indication: SOMNOLENCE
     Route: 048
     Dates: start: 2008, end: 201211
  3. OMEPRAZOLE/SODIUM BICARBONATE [Concomitant]
  4. FENOFIBRATE [Concomitant]
  5. ESCITALOPRAM OXALATE [Concomitant]
  6. LAMOTRIGINE [Concomitant]
  7. PALIPERIDONE [Concomitant]

REACTIONS (10)
  - Convulsion [None]
  - Tremor [None]
  - Economic problem [None]
  - Muscle spasticity [None]
  - Postictal state [None]
  - Dizziness [None]
  - Dizziness [None]
  - Nausea [None]
  - Dyspnoea [None]
  - Heart rate increased [None]
